FAERS Safety Report 8417460-1 (Version None)
Quarter: 2012Q2

REPORT INFORMATION
  Report Type: 
  Country: None (occurrence: None)
  Receive Date: 20120606
  Receipt Date: 20120531
  Transmission Date: 20120825
  Serious: Yes (Hospitalization, Other)
  Sender: FDA-Public Use
  Company Number: US-PFIZER INC-US-WYE-H06089108

PATIENT
  Sex: Female

DRUGS (4)
  1. EFFEXOR XR [Suspect]
     Indication: DEPRESSION
     Dosage: 150 MG, 1X/DAY
     Route: 048
     Dates: start: 20010101, end: 20080101
  2. EFFEXOR XR [Suspect]
     Dosage: STARTED TAPERING
     Route: 048
     Dates: start: 20080101
  3. EFFEXOR XR [Suspect]
     Dosage: UNK
     Route: 048
     Dates: start: 20120401, end: 20120501
  4. EFFEXOR XR [Suspect]
     Dosage: UNK
     Route: 048
     Dates: end: 20120101

REACTIONS (13)
  - TRANSIENT ISCHAEMIC ATTACK [None]
  - DIZZINESS [None]
  - SYNCOPE [None]
  - DRUG WITHDRAWAL SYNDROME [None]
  - HYPOAESTHESIA [None]
  - IMPAIRED WORK ABILITY [None]
  - BALANCE DISORDER [None]
  - EMOTIONAL DISORDER [None]
  - MENTAL IMPAIRMENT [None]
  - DISTURBANCE IN ATTENTION [None]
  - CONFUSIONAL STATE [None]
  - FEELING ABNORMAL [None]
  - DRUG INTOLERANCE [None]
